FAERS Safety Report 12265141 (Version 1)
Quarter: 2016Q2

REPORT INFORMATION
  Report Type: Spontaneous
  Country: US (occurrence: US)
  Receive Date: 20160413
  Receipt Date: 20160413
  Transmission Date: 20160815
  Serious: Yes (Hospitalization)
  Sender: FDA-Public Use
  Company Number: US-JAZZ-JPI-P-029273

PATIENT
  Age: 51 Year
  Sex: Male
  Weight: 154.54 kg

DRUGS (3)
  1. XYREM [Suspect]
     Active Substance: SODIUM OXYBATE
     Dosage: 3 G, BID
     Route: 048
     Dates: start: 20130130
  2. XYREM [Suspect]
     Active Substance: SODIUM OXYBATE
     Indication: NARCOLEPSY
     Dosage: 2.25 G, BID
     Route: 048
     Dates: start: 201301, end: 201301
  3. FLUOXETINE HYDROCHLORIDE. [Concomitant]
     Active Substance: FLUOXETINE HYDROCHLORIDE
     Indication: ANXIETY
     Dosage: 20 MG, QD
     Dates: start: 20130216

REACTIONS (7)
  - Irritable bowel syndrome [Recovered/Resolved]
  - Thinking abnormal [Unknown]
  - Insomnia [Unknown]
  - Anxiety [Unknown]
  - Gallbladder disorder [Unknown]
  - Abnormal dreams [Unknown]
  - Abdominal pain upper [Unknown]

NARRATIVE: CASE EVENT DATE: 20130114
